FAERS Safety Report 8213191-1 (Version None)
Quarter: 2012Q1

REPORT INFORMATION
  Report Type: 
  Country: None (occurrence: None)
  Receive Date: 20120315
  Receipt Date: 20120229
  Transmission Date: 20120608
  Serious: Yes (Other)
  Sender: FDA-Public Use
  Company Number: PHFR2012GB001468

PATIENT
  Sex: Male

DRUGS (2)
  1. VISCOTEARS [Concomitant]
  2. LID-CARE [Suspect]

REACTIONS (2)
  - DEAFNESS [None]
  - HYPOACUSIS [None]
